FAERS Safety Report 11722165 (Version 2)
Quarter: 2016Q3

REPORT INFORMATION
  Report Type: Spontaneous
  Country: US (occurrence: US)
  Receive Date: 20151111
  Receipt Date: 20160822
  Transmission Date: 20161109
  Serious: Yes (Hospitalization, Other)
  Sender: FDA-Public Use
  Company Number: US-JNJFOC-20151020795

PATIENT
  Age: 78 Year
  Sex: Female
  Weight: 64.41 kg

DRUGS (2)
  1. COUMADIN [Concomitant]
     Active Substance: WARFARIN SODIUM
     Indication: PULMONARY EMBOLISM
     Route: 065
  2. XARELTO [Suspect]
     Active Substance: RIVAROXABAN
     Indication: PULMONARY EMBOLISM
     Dosage: 20 MG THEN CHANGED TO 15 MG
     Route: 048
     Dates: start: 20131227, end: 20150226

REACTIONS (4)
  - Haematuria [Unknown]
  - Gastrointestinal haemorrhage [Recovering/Resolving]
  - Deep vein thrombosis [Unknown]
  - Haemorrhage [Unknown]

NARRATIVE: CASE EVENT DATE: 20140929
